FAERS Safety Report 12438052 (Version 1)
Quarter: 2016Q2

REPORT INFORMATION
  Report Type: Spontaneous
  Country: AU (occurrence: AU)
  Receive Date: 20160606
  Receipt Date: 20160606
  Transmission Date: 20160815
  Serious: Yes (Hospitalization, Other)
  Sender: FDA-Public Use
  Company Number: AU-GLAXOSMITHKLINE-AU2016GSK070451

PATIENT
  Age: 83 Year
  Sex: Male

DRUGS (1)
  1. VOLTAREN [Suspect]
     Active Substance: DICLOFENAC SODIUM
     Indication: SPINAL PAIN
     Dosage: UNK, 100G
     Route: 061
     Dates: end: 20160512

REACTIONS (6)
  - Scrotal swelling [Recovering/Resolving]
  - Peripheral swelling [Recovering/Resolving]
  - Oedema [Unknown]
  - Incorrect drug administration duration [Unknown]
  - Pulmonary thrombosis [Unknown]
  - Product use issue [Unknown]
